FAERS Safety Report 5542963-7 (Version None)
Quarter: 2007Q4

REPORT INFORMATION
  Report Type: 
  Country: None (occurrence: None)
  Receive Date: 20071210
  Receipt Date: 20071204
  Transmission Date: 20080405
  Serious: Yes (Other)
  Sender: FDA-Public Use
  Company Number: US-MERCK-0712USA01514

PATIENT
  Age: 64 Year
  Sex: Female

DRUGS (8)
  1. DECADRON [Suspect]
     Indication: MULTIPLE MYELOMA
     Route: 065
  2. REVLIMID [Suspect]
     Indication: MULTIPLE MYELOMA
     Route: 048
     Dates: start: 20070401, end: 20070530
  3. REVLIMID [Suspect]
     Route: 048
     Dates: start: 20070606, end: 20070622
  4. REVLIMID [Suspect]
     Route: 048
     Dates: start: 20070713
  5. PROCRIT [Concomitant]
     Route: 065
  6. MIRALAX [Concomitant]
     Route: 065
  7. MEVACOR [Concomitant]
     Route: 065
  8. OMEPRAZOLE [Concomitant]
     Route: 065

REACTIONS (1)
  - WHITE BLOOD CELL COUNT DECREASED [None]
